FAERS Safety Report 18528183 (Version 1)
Quarter: 2020Q4

REPORT INFORMATION
  Report Type: Spontaneous
  Country: US (occurrence: US)
  Receive Date: 20201120
  Receipt Date: 20201120
  Transmission Date: 20210114
  Serious: Yes (Other)
  Sender: FDA-Public Use
  Company Number: US-GLAXOSMITHKLINE-US2020GSK224342

PATIENT
  Age: 14 Year
  Sex: Female

DRUGS (6)
  1. CLOBETASOL [Suspect]
     Active Substance: CLOBETASOL
     Indication: ADRENOCORTICAL STEROID THERAPY
     Dosage: 0.05%, BID
  2. TRIAMCINOLONE [Suspect]
     Active Substance: TRIAMCINOLONE
     Indication: ADRENOCORTICAL STEROID THERAPY
     Dosage: 3 MG/ML
  3. LAMOTRIGINE. [Suspect]
     Active Substance: LAMOTRIGINE
     Indication: ATTENTION DEFICIT HYPERACTIVITY DISORDER
  4. TRIAMCINOLONE [Suspect]
     Active Substance: TRIAMCINOLONE
     Indication: ATTENTION DEFICIT HYPERACTIVITY DISORDER
  5. LAMOTRIGINE. [Suspect]
     Active Substance: LAMOTRIGINE
     Indication: AFFECTIVE DISORDER
     Dosage: UNK
  6. TRIAMCINOLONE [Suspect]
     Active Substance: TRIAMCINOLONE
     Indication: ADRENOCORTICAL STEROID THERAPY
     Dosage: 0.1%, BID
     Route: 061

REACTIONS (15)
  - Acanthosis [Unknown]
  - Alopecia universalis [Unknown]
  - Pyrexia [Unknown]
  - Drug eruption [Unknown]
  - Gingival erosion [Unknown]
  - Madarosis [Unknown]
  - Pigmentation disorder [Unknown]
  - Oropharyngeal plaque [Unknown]
  - Eosinophilia [Unknown]
  - Rash [Unknown]
  - Lymphadenopathy [Unknown]
  - Drug reaction with eosinophilia and systemic symptoms [Unknown]
  - Face oedema [Unknown]
  - Lymphocytic infiltration [Unknown]
  - Drug ineffective [Unknown]
